FAERS Safety Report 5632908-3 (Version None)
Quarter: 2008Q1

REPORT INFORMATION
  Report Type: 
  Country: None (occurrence: None)
  Receive Date: 20080221
  Receipt Date: 20080214
  Transmission Date: 20080703
  Serious: Yes (Other)
  Sender: FDA-Public Use
  Company Number: PHNU2008DE00987

PATIENT
  Sex: Male

DRUGS (3)
  1. PREDNISONE TAB [Concomitant]
     Dosage: 15MG/DAY
  2. CORTISONE [Concomitant]
     Dosage: 8-12MG/DAY
  3. MYFORTIC [Suspect]
     Indication: DERMATITIS ATOPIC
     Dosage: 180 MG, BID
     Route: 048
     Dates: start: 20060101

REACTIONS (2)
  - JOINT ARTHROPLASTY [None]
  - LYMPHOPENIA [None]
